FAERS Safety Report 11717556 (Version 1)
Quarter: 2015Q4

REPORT INFORMATION
  Report Type: Spontaneous
  Country: US (occurrence: US)
  Receive Date: 20151110
  Receipt Date: 20151110
  Transmission Date: 20160304
  Serious: Yes (Other)
  Sender: FDA-Public Use
  Company Number: US-TEVA-597316USA

PATIENT
  Sex: Female

DRUGS (1)
  1. CELECOXIB. [Suspect]
     Active Substance: CELECOXIB
     Indication: ARTHRITIS
     Dosage: 400 MILLIGRAM DAILY;
     Dates: start: 201509, end: 201509

REACTIONS (2)
  - Blister [Unknown]
  - Product contamination [Unknown]

NARRATIVE: CASE EVENT DATE: 201509
